FAERS Safety Report 5715343-9 (Version None)
Quarter: 2008Q2

REPORT INFORMATION
  Report Type: 
  Country: None (occurrence: None)
  Receive Date: 20080423
  Receipt Date: 20080411
  Transmission Date: 20081010
  Serious: Yes (Other)
  Sender: FDA-Public Use
  Company Number: US-PFIZER INC-2008032478

PATIENT

DRUGS (1)
  1. ZYVOX [Suspect]

REACTIONS (2)
  - DRUG TOXICITY [None]
  - LACTIC ACIDOSIS [None]
